FAERS Safety Report 8954543 (Version 4)
Quarter: 2013Q2

REPORT INFORMATION
  Report Type: Spontaneous
  Country: US (occurrence: US)
  Receive Date: 20121207
  Receipt Date: 20130402
  Transmission Date: 20140414
  Serious: Yes (Other)
  Sender: FDA-Public Use
  Company Number: US-PERRIGO-12US010322

PATIENT
  Age: 54 Year
  Sex: Male
  Weight: 112.2 kg

DRUGS (9)
  1. SALINE NASAL SPRAY 0.65% 312 [Suspect]
     Indication: NASAL CONGESTION
     Dosage: 3 SPRAYS IN EACH NOSTRIL, SINGLE
     Route: 045
     Dates: start: 20121127, end: 20121127
  2. METOPROLOL [Concomitant]
     Indication: HYPERTENSION
     Dosage: UNK, UNK
     Route: 048
  3. BENAZEPRIL [Concomitant]
     Indication: HYPERTENSION
     Dosage: UNK, UNK
     Route: 048
  4. ADVAIR [Concomitant]
     Indication: ASTHMA
     Dosage: UNK, UNK
     Route: 055
  5. FLONASE [Concomitant]
     Indication: HYPERSENSITIVITY
     Dosage: UNK, UNK
     Route: 045
  6. SINGULAIR [Concomitant]
     Indication: ASTHMA
     Dosage: UNK, UNK
     Route: 048
  7. LORATADINE [Concomitant]
     Indication: HYPERSENSITIVITY
     Dosage: UNK, QD
     Route: 048
  8. ZYRTEC [Concomitant]
     Indication: HYPERSENSITIVITY
     Dosage: UNK, UNK
     Route: 048
  9. SUDAFED [Concomitant]
     Indication: NASAL CONGESTION
     Dosage: UNK, UNK
     Route: 048

REACTIONS (13)
  - Hypersensitivity [Recovered/Resolved]
  - Pharyngeal oedema [Recovered/Resolved]
  - Angioedema [Recovered/Resolved]
  - Dyspnoea [Recovered/Resolved]
  - Nasal congestion [Recovered/Resolved]
  - Headache [Recovered/Resolved]
  - Oropharyngeal pain [Recovered/Resolved]
  - Application site pain [Recovered/Resolved]
  - Throat irritation [Recovered/Resolved]
  - Nasal discomfort [Recovered/Resolved]
  - Vision blurred [Recovered/Resolved]
  - Palatal oedema [Recovered/Resolved]
  - Off label use [Recovered/Resolved]
